FAERS Safety Report 4721397-9 (Version None)
Quarter: 2005Q3

REPORT INFORMATION
  Report Type: 
  Country: None (occurrence: None)
  Receive Date: 20050721
  Receipt Date: 20040809
  Transmission Date: 20060218
  Serious: Yes (Hospitalization)
  Sender: FDA-Public Use
  Company Number: US-BRISTOL-MYERS SQUIBB COMPANY-12664678

PATIENT
  Age: 74 Year
  Sex: Male
  Weight: 68 kg

DRUGS (3)
  1. COUMADIN [Suspect]
     Indication: EMBOLISM
     Dosage: STARTED TAKING 9MG DAILY ^SEVERAL YEARS AGO^;PERIODICALLY OFF DRUG FOR FEW DAYS AT A TIME.
     Route: 048
  2. TIKOSYN [Concomitant]
     Dates: start: 20040501
  3. EYE DROPS [Concomitant]
     Indication: GLAUCOMA
     Dosage: EYE DROPS TWICE A DAY
     Route: 047
     Dates: start: 19890101

REACTIONS (2)
  - ATRIAL FIBRILLATION [None]
  - INTERNATIONAL NORMALISED RATIO DECREASED [None]
